FAERS Safety Report 7319480-7 (Version None)
Quarter: 2011Q1

REPORT INFORMATION
  Report Type: 
  Country: None (occurrence: None)
  Receive Date: 20110228
  Receipt Date: 20100413
  Transmission Date: 20110831
  Serious: No
  Sender: FDA-Public Use
  Company Number: A0854797A

PATIENT
  Age: 34 Year
  Sex: Female

DRUGS (3)
  1. AMBIEN [Concomitant]
  2. KLONOPIN [Concomitant]
  3. LAMICTAL [Suspect]
     Route: 048
     Dates: start: 20100301

REACTIONS (2)
  - DECREASED APPETITE [None]
  - NAUSEA [None]
